FAERS Safety Report 6368147-0 (Version None)
Quarter: 2009Q3

REPORT INFORMATION
  Report Type: 
  Country: None (occurrence: None)
  Receive Date: 20090922
  Receipt Date: 20090912
  Transmission Date: 20100115
  Serious: Yes (Other)
  Sender: FDA-Public Use
  Company Number: US-AMGEN-QUU364474

PATIENT
  Sex: Female

DRUGS (3)
  1. ENBREL [Suspect]
     Indication: RHEUMATOID ARTHRITIS
     Route: 058
     Dates: start: 20040801
  2. METHOTREXATE [Concomitant]
  3. REMICADE [Concomitant]
     Dates: start: 20041001

REACTIONS (25)
  - ABDOMINAL PAIN UPPER [None]
  - ANAEMIA [None]
  - ARACHNOID CYST [None]
  - BACK PAIN [None]
  - BLOOD GLUCOSE INCREASED [None]
  - CENTRAL NERVOUS SYSTEM LESION [None]
  - DIZZINESS [None]
  - DYSPNOEA [None]
  - GLAUCOMA [None]
  - HEADACHE [None]
  - HEARING IMPAIRED [None]
  - HUNGER [None]
  - HYPERACUSIS [None]
  - HYPOAESTHESIA [None]
  - INDURATION [None]
  - INJECTION SITE PAIN [None]
  - LYMPHADENOPATHY [None]
  - MULTIPLE SCLEROSIS [None]
  - MUSCLE SPASMS [None]
  - MUSCULOSKELETAL PAIN [None]
  - PHOTOPHOBIA [None]
  - RHEUMATOID ARTHRITIS [None]
  - SINUSITIS [None]
  - TREMOR [None]
  - VISION BLURRED [None]
